FAERS Safety Report 4380459-9 (Version None)
Quarter: 2004Q2

REPORT INFORMATION
  Report Type: 
  Country: None (occurrence: None)
  Receive Date: 20040614
  Receipt Date: 20040608
  Transmission Date: 20050107
  Serious: Yes (Other)
  Sender: FDA-Public Use
  Company Number: 2004-03-0620

PATIENT
  Age: 51 Year
  Sex: Female

DRUGS (9)
  1. GENTAMICIN SULFATE [Suspect]
     Indication: INFECTION PROPHYLAXIS
     Dosage: SEE IMAGE
     Route: 042
     Dates: start: 20040210, end: 20040221
  2. GENTAMICIN SULFATE [Suspect]
     Indication: POSTOPERATIVE INFECTION
     Dosage: SEE IMAGE
     Route: 042
     Dates: start: 20040210, end: 20040221
  3. GENTAMICIN SULFATE [Suspect]
     Indication: INFECTION PROPHYLAXIS
     Dosage: SEE IMAGE
     Route: 042
     Dates: start: 20040210, end: 20040223
  4. GENTAMICIN SULFATE [Suspect]
     Indication: POSTOPERATIVE INFECTION
     Dosage: SEE IMAGE
     Route: 042
     Dates: start: 20040210, end: 20040223
  5. GENTAMICIN SULFATE [Suspect]
     Indication: INFECTION PROPHYLAXIS
     Dosage: SEE IMAGE
     Route: 042
     Dates: start: 20040222, end: 20040223
  6. GENTAMICIN SULFATE [Suspect]
     Indication: POSTOPERATIVE INFECTION
     Dosage: SEE IMAGE
     Route: 042
     Dates: start: 20040222, end: 20040223
  7. FLUMARIN (FLOMOXEF SODIUM) INJECTABLE [Suspect]
     Indication: DRUG USE FOR UNKNOWN INDICATION
  8. CEFMETAZON [Suspect]
     Indication: INFECTION PROPHYLAXIS
     Dates: start: 20040222, end: 20040223
  9. CEFMETAZON [Suspect]
     Indication: POSTOPERATIVE INFECTION
     Dates: start: 20040222, end: 20040223

REACTIONS (1)
  - HEPATIC FUNCTION ABNORMAL [None]
